FAERS Safety Report 5107720-4 (Version None)
Quarter: 2006Q3

REPORT INFORMATION
  Report Type: 
  Country: None (occurrence: None)
  Receive Date: 20060914
  Receipt Date: 20060728
  Transmission Date: 20061208
  Serious: Yes (Hospitalization, Other)
  Sender: FDA-Public Use
  Company Number: 2006037240

PATIENT
  Age: 78 Year
  Sex: Male
  Weight: 71.3 kg

DRUGS (11)
  1. SU-011,248 (SUNITINIB MALATE) [Suspect]
     Indication: RENAL CELL CARCINOMA STAGE UNSPECIFIED
     Dosage: SEE IMAGE
     Route: 048
     Dates: start: 20060301, end: 20060313
  2. SU-011,248 (SUNITINIB MALATE) [Suspect]
     Indication: RENAL CELL CARCINOMA STAGE UNSPECIFIED
     Dosage: SEE IMAGE
     Route: 048
     Dates: start: 20060412, end: 20060420
  3. CANDESARTAN CILEXETIL (CANDESARTAN CILEXETIL) [Concomitant]
  4. I.V. SOLUTIONS (I.V. SOLUTIONS) [Concomitant]
  5. GLUCOSE (GLUCOSE) [Concomitant]
  6. FAMOTIDINE [Concomitant]
  7. ACETAMINOPHEN [Concomitant]
  8. DIFLUCORTOLONE VALERATE (DIFLUCORTOLONE VALERATE) [Concomitant]
  9. LIDOCAINE [Concomitant]
  10. AMLODIPINE BESILATE (AMLODIPINE) [Concomitant]
  11. SENNOSIDE A+B (SENNOSIDE A+B) [Concomitant]

REACTIONS (33)
  - ALANINE AMINOTRANSFERASE INCREASED [None]
  - ASPARTATE AMINOTRANSFERASE INCREASED [None]
  - BETA 2 MICROGLOBULIN INCREASED [None]
  - BETA-N-ACETYL-D-GLUCOSAMINIDASE INCREASED [None]
  - BLOOD ALBUMIN DECREASED [None]
  - BLOOD ALKALINE PHOSPHATASE INCREASED [None]
  - BLOOD GASES ABNORMAL [None]
  - BLOOD GLUCOSE INCREASED [None]
  - BLOOD LACTATE DEHYDROGENASE INCREASED [None]
  - BLOOD POTASSIUM DECREASED [None]
  - BLOOD SODIUM DECREASED [None]
  - BLOOD URINE PRESENT [None]
  - DRUG HYPERSENSITIVITY [None]
  - FALL [None]
  - HEPATIC FUNCTION ABNORMAL [None]
  - HYPERAMYLASAEMIA [None]
  - HYPERTENSION [None]
  - INTERSTITIAL LUNG DISEASE [None]
  - JAUNDICE [None]
  - METABOLIC ACIDOSIS [None]
  - OLIGURIA [None]
  - PITTING OEDEMA [None]
  - PLATELET COUNT DECREASED [None]
  - PLEURAL EFFUSION [None]
  - PLEURAL FIBROSIS [None]
  - PROTEIN URINE PRESENT [None]
  - PULMONARY EMBOLISM [None]
  - PULMONARY OEDEMA [None]
  - RENAL FAILURE ACUTE [None]
  - RENAL TUBULAR DISORDER [None]
  - SYNCOPE [None]
  - THROMBOCYTOPENIA [None]
  - WEIGHT INCREASED [None]
